FAERS Safety Report 25604754 (Version 1)
Quarter: 2025Q3

REPORT INFORMATION
  Report Type: Spontaneous
  Country: US (occurrence: US)
  Receive Date: 20250725
  Receipt Date: 20250725
  Transmission Date: 20251020
  Serious: No
  Sender: LYNE LABORATORIES
  Company Number: US-Lyne Laboratories Inc.-2181193

PATIENT
  Age: 1 Month
  Sex: Male

DRUGS (3)
  1. NYSTATIN [Suspect]
     Active Substance: NYSTATIN
     Indication: Dermatitis diaper
  2. Beaudroxs [Concomitant]
  3. Aquafor [Concomitant]

REACTIONS (1)
  - Drug ineffective for unapproved indication [Unknown]
